FAERS Safety Report 4553184-9 (Version None)
Quarter: 2005Q1

REPORT INFORMATION
  Report Type: 
  Country: None (occurrence: None)
  Receive Date: 20050113
  Receipt Date: 20041230
  Transmission Date: 20050727
  Serious: Yes (Hospitalization)
  Sender: FDA-Public Use
  Company Number: 2004UW18650

PATIENT
  Age: 48 Year
  Sex: Male
  Weight: 87.0906 kg

DRUGS (3)
  1. PRILOSEC OTC [Suspect]
     Indication: DYSPEPSIA
     Dosage: 20 MG DAILY PO
     Route: 048
     Dates: start: 20040722, end: 20040726
  2. PRILOSEC OTC [Suspect]
     Indication: FLATULENCE
     Dosage: 20 MG DAILY PO
     Route: 048
     Dates: start: 20040722, end: 20040726
  3. ZANTAC [Concomitant]

REACTIONS (3)
  - INSOMNIA [None]
  - SMALL INTESTINAL OBSTRUCTION [None]
  - SYNCOPE [None]
